FAERS Safety Report 4635978-4 (Version None)
Quarter: 2005Q2

REPORT INFORMATION
  Report Type: 
  Country: None (occurrence: None)
  Receive Date: 20050415
  Receipt Date: 20050412
  Transmission Date: 20051028
  Serious: Yes (Life-Threatening)
  Sender: FDA-Public Use
  Company Number: IT-BRISTOL-MYERS SQUIBB COMPANY-12931838

PATIENT
  Age: 67 Year
  Sex: Female

DRUGS (2)
  1. TAXOL [Suspect]
     Indication: BREAST CANCER
     Route: 042
     Dates: start: 20050406, end: 20050406
  2. AMARYL [Concomitant]

REACTIONS (2)
  - CYANOSIS [None]
  - LOSS OF CONSCIOUSNESS [None]
